FAERS Safety Report 9563963 (Version 1)
Quarter: 2013Q3

REPORT INFORMATION
  Report Type: Spontaneous
  Country: US (occurrence: US)
  Receive Date: 20130928
  Receipt Date: 20130928
  Transmission Date: 20140515
  Serious: Yes (Disabling, Other)
  Sender: FDA-Public Use
  Company Number: US-BAYER-2013-116656

PATIENT
  Age: 23 Year
  Sex: Female

DRUGS (1)
  1. MIRENA [Suspect]
     Dosage: 20 MCG/24HR, CONT
     Route: 015
     Dates: start: 20111013, end: 20120927

REACTIONS (11)
  - Device dislocation [None]
  - Uterine haemorrhage [None]
  - Pelvic pain [None]
  - Pelvic inflammatory disease [None]
  - Injury [None]
  - Anxiety [None]
  - Emotional distress [None]
  - Deformity [None]
  - Anhedonia [None]
  - General physical health deterioration [None]
  - Haematoma [None]
